FAERS Safety Report 10028496 (Version 1)
Quarter: 2014Q1

REPORT INFORMATION
  Report Type: Spontaneous
  Country: US (occurrence: None)
  Receive Date: 20140307
  Receipt Date: 20140307
  Transmission Date: 20141002
  Serious: Yes (Congenital Anomaly)
  Sender: FDA-Public Use
  Company Number: 2014AP001691

PATIENT
  Sex: 0

DRUGS (3)
  1. CARBAMAZEPINE [Suspect]
     Route: 064
  2. TOPIRAMATE TABLETS [Suspect]
     Route: 064
  3. PHENYTOIN [Suspect]
     Route: 064

REACTIONS (5)
  - Pulmonary malformation [None]
  - Heart disease congenital [None]
  - Brain malformation [None]
  - Maternal drugs affecting foetus [None]
  - Abortion induced [None]
